FAERS Safety Report 24680446 (Version 1)
Quarter: 2024Q4

REPORT INFORMATION
  Report Type: Spontaneous
  Country: US (occurrence: US)
  Receive Date: 20241129
  Receipt Date: 20241129
  Transmission Date: 20250115
  Serious: Yes (Death)
  Sender: AMGEN
  Company Number: US-AMGEN-USASP2024231665

PATIENT

DRUGS (3)
  1. PREDNISONE [Suspect]
     Active Substance: PREDNISONE
     Indication: COVID-19
     Dosage: UNK
     Route: 065
  2. RITUXIMAB [Suspect]
     Active Substance: RITUXIMAB
     Indication: COVID-19
     Dosage: } 1 MG/KG
     Route: 065
  3. DEXAMETHASONE [Concomitant]
     Active Substance: DEXAMETHASONE
     Dosage: UNK
     Route: 065

REACTIONS (3)
  - Tumour lysis syndrome [Fatal]
  - Neoplasm malignant [Fatal]
  - Off label use [Unknown]
